FAERS Safety Report 17859177 (Version 1)
Quarter: 2020Q2

REPORT INFORMATION
  Report Type: Spontaneous
  Country: FR (occurrence: FR)
  Receive Date: 20200604
  Receipt Date: 20200604
  Transmission Date: 20200714
  Serious: Yes (Hospitalization)
  Sender: FDA-Public Use
  Company Number: FR-SUN PHARMACEUTICAL INDUSTRIES LTD-2020RR-249154

PATIENT
  Age: 51 Year
  Sex: Male
  Weight: 75 kg

DRUGS (5)
  1. PARACETAMOL [Suspect]
     Active Substance: ACETAMINOPHEN
     Indication: PYREXIA
     Dosage: 1 GRAM, UNK
     Route: 048
  2. MIRTAZAPINE. [Suspect]
     Active Substance: MIRTAZAPINE
     Indication: DEPRESSION
     Dosage: 15 MILLIGRAM, DAILY
     Route: 048
     Dates: start: 2002
  3. VICTAN 2 MG, COMPRIME PELLICULE SECABLE [Concomitant]
     Active Substance: ETHYL LOFLAZEPATE
     Indication: ANXIETY
     Dosage: UNK
     Route: 048
  4. BETNEVAL [Suspect]
     Active Substance: BETAMETHASONE VALERATE
     Indication: PRODUCT USED FOR UNKNOWN INDICATION
     Dosage: NON COMMUNIQUEE
     Route: 003
  5. DOXYCYCLINE. [Suspect]
     Active Substance: DOXYCYCLINE
     Indication: PRODUCT USED FOR UNKNOWN INDICATION
     Dosage: NON COMMUNIQUEE
     Route: 048
     Dates: start: 2014

REACTIONS (1)
  - Pyrexia [Recovered/Resolved]

NARRATIVE: CASE EVENT DATE: 20170508
